FAERS Safety Report 17758742 (Version 1)
Quarter: 2020Q2

REPORT INFORMATION
  Report Type: Report from Study
  Country: IT (occurrence: IT)
  Receive Date: 20200507
  Receipt Date: 20200507
  Transmission Date: 20200714
  Serious: Yes (Other)
  Sender: FDA-Public Use
  Company Number: IT-ROCHE-2595079

PATIENT

DRUGS (2)
  1. RITUXIMAB. [Suspect]
     Active Substance: RITUXIMAB
     Indication: MULTIPLE SCLEROSIS
     Dosage: RTX WAS ADMINISTERED INTRAVENOUSLY AT THE DOSAGE OF 1000 MG TWICE WITH 8 WEEKS APART, IN A SINGLE CO
     Route: 041
  2. RITUXIMAB. [Suspect]
     Active Substance: RITUXIMAB
     Dosage: MAINTENANCE REGIMEN
     Route: 041

REACTIONS (10)
  - Respiratory tract infection [Unknown]
  - Infusion related reaction [Unknown]
  - Sepsis [Unknown]
  - Leukopenia [Unknown]
  - Gastrointestinal infection [Unknown]
  - Off label use [Unknown]
  - Urinary tract infection [Unknown]
  - Pancreatic carcinoma [Unknown]
  - Neutropenia [Unknown]
  - Intentional product use issue [Unknown]
